FAERS Safety Report 12085790 (Version 1)
Quarter: 2016Q1

REPORT INFORMATION
  Report Type: Spontaneous
  Country: CA (occurrence: CA)
  Receive Date: 20160217
  Receipt Date: 20160217
  Transmission Date: 20160526
  Serious: Yes (Hospitalization, Other)
  Sender: FDA-Public Use
  Company Number: CA-009507513-1502CAN009796

PATIENT
  Age: 58 Year
  Sex: Female

DRUGS (2)
  1. INTRON A [Suspect]
     Active Substance: INTERFERON ALFA-2B
     Dosage: 4 MILLION IU, 3 TIMES PER WEEK
     Route: 058
     Dates: end: 201512
  2. INTRON A [Suspect]
     Active Substance: INTERFERON ALFA-2B
     Indication: MYCOSIS FUNGOIDES
     Dosage: 3 MILLION IU, 3 TIMES PER WEEK, ROUTE REPORTED AS: INJECTION
     Route: 065

REACTIONS (5)
  - Palpitations [Unknown]
  - Product use issue [Unknown]
  - Non-Hodgkin^s lymphoma [Unknown]
  - Hospitalisation [Unknown]
  - Disease progression [Unknown]

NARRATIVE: CASE EVENT DATE: 201508
